FAERS Safety Report 21466218 (Version 1)
Quarter: 2022Q4

REPORT INFORMATION
  Report Type: Spontaneous
  Country: CN (occurrence: None)
  Receive Date: 20221017
  Receipt Date: 20221017
  Transmission Date: 20230113
  Serious: Yes (Other)
  Sender: FDA-Public Use
  Company Number: 2022A344146

PATIENT
  Age: 31049 Day
  Sex: Male
  Weight: 70 kg

DRUGS (2)
  1. OSIMERTINIB MESYLATE [Suspect]
     Active Substance: OSIMERTINIB MESYLATE
     Indication: Adenocarcinoma
     Route: 048
     Dates: start: 20220722, end: 20220909
  2. CATEQUENTINIB [Concomitant]
     Active Substance: CATEQUENTINIB
     Indication: Neoplasm
     Dosage: 10 MG D1-14Q3W
     Dates: start: 20220712

REACTIONS (3)
  - Renal impairment [Recovering/Resolving]
  - Decreased appetite [Unknown]
  - Poor quality sleep [Unknown]

NARRATIVE: CASE EVENT DATE: 20220909
